FAERS Safety Report 18645936 (Version 1)
Quarter: 2020Q4

REPORT INFORMATION
  Report Type: Spontaneous
  Country: US (occurrence: US)
  Receive Date: 20201221
  Receipt Date: 20201221
  Transmission Date: 20210114
  Serious: No
  Sender: FDA-Public Use
  Company Number: US-AMGEN-USASP2020204311

PATIENT
  Age: 38 Year
  Sex: Female

DRUGS (2)
  1. REPATHA [Suspect]
     Active Substance: EVOLOCUMAB
     Dosage: 420 MILLIGRAM
     Route: 058
     Dates: start: 2020
  2. REPATHA [Suspect]
     Active Substance: EVOLOCUMAB
     Indication: BLOOD CHOLESTEROL INCREASED
     Dosage: UNK
     Route: 058
     Dates: start: 2020

REACTIONS (4)
  - Injection site pruritus [Unknown]
  - Injection site mass [Unknown]
  - Product administered at inappropriate site [Unknown]
  - Injection site erythema [Unknown]

NARRATIVE: CASE EVENT DATE: 20201211
